FAERS Safety Report 4638555-4 (Version None)
Quarter: 2005Q2

REPORT INFORMATION
  Report Type: 
  Country: None (occurrence: None)
  Receive Date: 20050419
  Receipt Date: 20050407
  Transmission Date: 20051028
  Serious: Yes (Death, Other)
  Sender: FDA-Public Use
  Company Number: NL-JNJFOC-20050402105

PATIENT
  Age: 82 Year
  Sex: Female

DRUGS (3)
  1. INFLIXIMAB [Suspect]
     Indication: RHEUMATOID ARTHRITIS
     Dosage: 34 MONTHS OF TREATMENT
     Route: 042
  2. PREDNISONE [Concomitant]
  3. AZATHIOPRINE [Concomitant]

REACTIONS (3)
  - DISSEMINATED TUBERCULOSIS [None]
  - INFECTION [None]
  - SEPSIS [None]
